FAERS Safety Report 6764453 (Version 4)
Quarter: 2013Q4

REPORT INFORMATION
  Report Type: Spontaneous
  Country: US (occurrence: US)
  Receive Date: 20080904
  Receipt Date: 20131107
  Transmission Date: 20140711
  Serious: Yes (Hospitalization)
  Sender: FDA-Public Use
  Company Number: 2008BI021837

PATIENT
  Age: 30 Year
  Sex: Female
  Weight: 65 kg

DRUGS (1)
  1. AVONEX [Suspect]
     Indication: MULTIPLE SCLEROSIS
     Route: 030
     Dates: start: 20080821, end: 20080821

REACTIONS (5)
  - Haematoma [Recovered/Resolved]
  - Retrograde amnesia [Recovered/Resolved]
  - Grand mal convulsion [Recovered/Resolved]
  - Fall [Recovered/Resolved]
  - Skin mass [Not Recovered/Not Resolved]
